FAERS Safety Report 20235176 (Version 1)
Quarter: 2021Q4

REPORT INFORMATION
  Report Type: Report from Study
  Country: US (occurrence: US)
  Receive Date: 20211227
  Receipt Date: 20211227
  Transmission Date: 20220303
  Serious: Yes (Other)
  Sender: FDA-Public Use
  Company Number: US-ABBVIE-21K-163-4212927-00

PATIENT
  Sex: Male

DRUGS (1)
  1. CREON [Suspect]
     Active Substance: PANCRELIPASE AMYLASE\PANCRELIPASE LIPASE\PANCRELIPASE PROTEASE
     Indication: Product used for unknown indication
     Dosage: 2 WITH EACH MEAL AND 1 WITH EACH SNACK
     Route: 048

REACTIONS (6)
  - Coronary arterial stent insertion [Unknown]
  - Hiatus hernia [Unknown]
  - Gastric ulcer [Unknown]
  - Blood pressure systolic abnormal [Unknown]
  - Dysphagia [Unknown]
  - Penile haemorrhage [Recovered/Resolved]
